FAERS Safety Report 14780717 (Version 2)
Quarter: 2018Q2

REPORT INFORMATION
  Report Type: Spontaneous
  Country: US (occurrence: US)
  Receive Date: 20180419
  Receipt Date: 20180503
  Transmission Date: 20180711
  Serious: Yes (Hospitalization, Other)
  Sender: FDA-Public Use
  Company Number: US-TEVA-2018-US-881053

PATIENT
  Age: 66 Year
  Sex: Female

DRUGS (1)
  1. COPAXONE [Suspect]
     Active Substance: GLATIRAMER ACETATE
     Indication: MULTIPLE SCLEROSIS
     Route: 058
     Dates: start: 20160501

REACTIONS (9)
  - Stress [Unknown]
  - Cerebrovascular accident [Unknown]
  - Anxiety [Unknown]
  - Gait disturbance [Unknown]
  - Dysphagia [Recovering/Resolving]
  - Multiple sclerosis [Unknown]
  - Speech disorder [Recovering/Resolving]
  - Dry mouth [Recovering/Resolving]
  - Speech disorder [Unknown]

NARRATIVE: CASE EVENT DATE: 201710
